FAERS Safety Report 18724620 (Version 1)
Quarter: 2021Q1

REPORT INFORMATION
  Report Type: Spontaneous
  Country: US (occurrence: US)
  Receive Date: 20210111
  Receipt Date: 20210111
  Transmission Date: 20210419
  Serious: No
  Sender: FDA-Public Use
  Company Number: None

PATIENT
  Age: 52 Year
  Sex: Male
  Weight: 97.07 kg

DRUGS (4)
  1. TALTZ [Suspect]
     Active Substance: IXEKIZUMAB
     Indication: PSORIATIC ARTHROPATHY
     Route: 058
     Dates: start: 20190731, end: 20201031
  2. ADVIL [Concomitant]
     Active Substance: IBUPROFEN
  3. BALSALAZIDE [Concomitant]
     Active Substance: BALSALAZIDE
  4. CLARITIN [Concomitant]
     Active Substance: LORATADINE

REACTIONS (5)
  - Crohn^s disease [None]
  - Culture stool positive [None]
  - Diarrhoea [None]
  - Bacillus infection [None]
  - Weight decreased [None]

NARRATIVE: CASE EVENT DATE: 20200920
